FAERS Safety Report 7309128-X (Version None)
Quarter: 2011Q1

REPORT INFORMATION
  Report Type: 
  Country: None (occurrence: None)
  Receive Date: 20110223
  Receipt Date: 20110209
  Transmission Date: 20110831
  Serious: Yes (Hospitalization, Other)
  Sender: FDA-Public Use
  Company Number: PHHY2011US10305

PATIENT
  Age: 49 Year
  Sex: Female

DRUGS (8)
  1. NITROGLYCERIN [Suspect]
  2. ALKALINE WATER [Concomitant]
  3. FUROSEMIDE [Suspect]
  4. SUPER BOOSTER PILL [Concomitant]
  5. GENESIS JUICE [Concomitant]
  6. METHYLPREDNISOLONE [Concomitant]
     Route: 042
  7. WARFARIN SODIUM [Suspect]
  8. REJUVENATOR PILLS [Concomitant]

REACTIONS (23)
  - DERMATOMYOSITIS [None]
  - ACIDOSIS [None]
  - ANAEMIA [None]
  - TACHYCARDIA [None]
  - MEMORY IMPAIRMENT [None]
  - SYSTEMIC LUPUS ERYTHEMATOSUS [None]
  - NIKOLSKY'S SIGN [None]
  - MUCOSAL INFLAMMATION [None]
  - ENCEPHALITIS [None]
  - SKIN NECROSIS [None]
  - DECUBITUS ULCER [None]
  - ERYTHEMA [None]
  - GRAND MAL CONVULSION [None]
  - ASTHENIA [None]
  - HYPOTENSION [None]
  - WOUND [None]
  - TOXIC EPIDERMAL NECROLYSIS [None]
  - MUCOSAL DRYNESS [None]
  - PIGMENTATION DISORDER [None]
  - SKIN EROSION [None]
  - RENAL TUBULAR NECROSIS [None]
  - GLOMERULONEPHRITIS [None]
  - PYREXIA [None]
